FAERS Safety Report 4918943-9 (Version None)
Quarter: 2006Q1

REPORT INFORMATION
  Report Type: 
  Country: None (occurrence: None)
  Receive Date: 20060222
  Receipt Date: 20060216
  Transmission Date: 20060701
  Serious: Yes (Disabling)
  Sender: FDA-Public Use
  Company Number: US-GLAXOSMITHKLINE-A0594036A

PATIENT
  Age: 54 Year
  Sex: Female

DRUGS (7)
  1. AVANDIA [Suspect]
     Indication: DIABETES MELLITUS NON-INSULIN-DEPENDENT
     Route: 048
     Dates: start: 20050728, end: 20060213
  2. METFORMIN HCL [Concomitant]
  3. AMITRIPTYLINE HCL [Concomitant]
  4. LISINOPRIL [Concomitant]
  5. METOPROLOL [Concomitant]
  6. SULAR [Concomitant]
  7. ZOCOR [Concomitant]

REACTIONS (3)
  - DIFFICULTY IN WALKING [None]
  - NEUROPATHY [None]
  - PERONEAL NERVE PALSY [None]
